FAERS Safety Report 12509586 (Version 2)
Quarter: 2016Q3

REPORT INFORMATION
  Report Type: Spontaneous
  Country: US (occurrence: US)
  Receive Date: 20160629
  Receipt Date: 20160708
  Transmission Date: 20161109
  Serious: Yes (Hospitalization)
  Sender: FDA-Public Use
  Company Number: US-FRESENIUS KABI-FK201603949

PATIENT
  Age: 67 Year
  Sex: Female

DRUGS (3)
  1. FLUOROURACIL (MANUFACTURER UNKNOWN) [Suspect]
     Active Substance: FLUOROURACIL
     Route: 040
  2. FLUOROURACIL (MANUFACTURER UNKNOWN) [Suspect]
     Active Substance: FLUOROURACIL
     Indication: PANCREATIC CARCINOMA METASTATIC
     Route: 065
  3. URIDINE TRIACETATE [Concomitant]
     Active Substance: URIDINE TRIACETATE

REACTIONS (5)
  - Mucosal inflammation [Recovered/Resolved]
  - Exfoliative rash [Recovered/Resolved]
  - Periorbital oedema [Recovered/Resolved]
  - Haemoglobin decreased [Unknown]
  - Thrombocytopenia [Recovered/Resolved]
